FAERS Safety Report 15907211 (Version 1)
Quarter: 2019Q1

REPORT INFORMATION
  Report Type: Spontaneous
  Country: US (occurrence: US)
  Receive Date: 20190204
  Receipt Date: 20190204
  Transmission Date: 20190417
  Serious: No
  Sender: FDA-Public Use
  Company Number: US-PFIZER INC-2019041385

PATIENT
  Sex: Female

DRUGS (2)
  1. LYRICA [Suspect]
     Active Substance: PREGABALIN
     Dosage: 150 MG, UNK
  2. LYRICA [Suspect]
     Active Substance: PREGABALIN
     Dosage: 150 MG, 2X/DAY (150 TO A HIGHER DOSE)
     Dates: end: 201901

REACTIONS (7)
  - Malaise [Unknown]
  - Musculoskeletal pain [Unknown]
  - Joint swelling [Unknown]
  - Headache [Unknown]
  - Arthralgia [Unknown]
  - Hypoaesthesia [Unknown]
  - Pain [Unknown]
